FAERS Safety Report 24050460 (Version 1)
Quarter: 2024Q3

REPORT INFORMATION
  Report Type: Spontaneous
  Country: US (occurrence: US)
  Receive Date: 20240704
  Receipt Date: 20240704
  Transmission Date: 20241016
  Serious: Yes (Disabling, Other)
  Sender: GRANULES INDIA
  Company Number: US-GRANULES-US-2024GRALIT00250

PATIENT
  Age: 70 Year
  Sex: Male

DRUGS (3)
  1. METFORMIN HYDROCHLORIDE [Suspect]
     Active Substance: METFORMIN HYDROCHLORIDE
     Indication: Type 2 diabetes mellitus
     Route: 065
  2. ROSIGLITAZONE [Suspect]
     Active Substance: ROSIGLITAZONE
     Indication: Type 2 diabetes mellitus
     Route: 065
  3. SITAGLIPTIN [Suspect]
     Active Substance: SITAGLIPTIN
     Indication: Type 2 diabetes mellitus
     Route: 065

REACTIONS (1)
  - Lumbosacral radiculoplexus neuropathy [Recovering/Resolving]
